FAERS Safety Report 21643193 (Version 1)
Quarter: 2022Q4

REPORT INFORMATION
  Report Type: Spontaneous
  Country: US (occurrence: US)
  Receive Date: 20221125
  Receipt Date: 20221125
  Transmission Date: 20230113
  Serious: Yes (Other)
  Sender: FDA-Public Use
  Company Number: US-GILEAD-2022-0605818

PATIENT
  Age: 85 Year
  Sex: Male
  Weight: 73.1 kg

DRUGS (1)
  1. YESCARTA [Suspect]
     Active Substance: AXICABTAGENE CILOLEUCEL
     Indication: Diffuse large B-cell lymphoma
     Dosage: UNK
     Route: 065
     Dates: start: 20220729

REACTIONS (19)
  - Ileus [Unknown]
  - Hallucination, auditory [Unknown]
  - Cytokine release syndrome [Unknown]
  - Immune effector cell-associated neurotoxicity syndrome [Unknown]
  - Encephalopathy [Unknown]
  - Depressed level of consciousness [Unknown]
  - Incontinence [Unknown]
  - Alanine aminotransferase abnormal [Unknown]
  - Hypoalbuminaemia [Unknown]
  - Hyponatraemia [Unknown]
  - Aspartate aminotransferase increased [Unknown]
  - Memory impairment [Unknown]
  - Dysphagia [Unknown]
  - Pyrexia [Unknown]
  - Fatigue [Unknown]
  - Diarrhoea [Unknown]
  - Confusional state [Unknown]
  - Aphasia [Unknown]
  - Somnolence [Unknown]

NARRATIVE: CASE EVENT DATE: 20220729
